FAERS Safety Report 12213235 (Version 4)
Quarter: 2016Q2

REPORT INFORMATION
  Report Type: Report from Study
  Country: PL (occurrence: PL)
  Receive Date: 20160328
  Receipt Date: 20160512
  Transmission Date: 20160815
  Serious: Yes (Other)
  Sender: FDA-Public Use
  Company Number: PHHY2016PL037248

PATIENT
  Age: 10 Year
  Sex: Male

DRUGS (1)
  1. EXJADE [Suspect]
     Active Substance: DEFERASIROX
     Indication: BLOOD IRON INCREASED
     Dosage: 250 MG, QD
     Route: 048
     Dates: start: 20150609, end: 20160215

REACTIONS (4)
  - Respiratory tract infection [Unknown]
  - Cough [Unknown]
  - Infection [Unknown]
  - Graft versus host disease [Unknown]
